FAERS Safety Report 4851813-3 (Version None)
Quarter: 2005Q4

REPORT INFORMATION
  Report Type: 
  Country: None (occurrence: None)
  Receive Date: 20051213
  Receipt Date: 20051205
  Transmission Date: 20060501
  Serious: Yes (Other)
  Sender: FDA-Public Use
  Company Number: 2005UW18357

PATIENT
  Sex: Female

DRUGS (1)
  1. SEROQUEL [Suspect]
     Dosage: STARTER PACK
     Route: 048

REACTIONS (3)
  - FALL [None]
  - FEELING DRUNK [None]
  - LOWER LIMB FRACTURE [None]
